FAERS Safety Report 5188221-4 (Version None)
Quarter: 2006Q4

REPORT INFORMATION
  Report Type: 
  Country: None (occurrence: None)
  Receive Date: 20061221
  Receipt Date: 20060808
  Transmission Date: 20070319
  Serious: Yes (Other)
  Sender: FDA-Public Use
  Company Number: PHNR2006AU01024

PATIENT
  Age: 61 Year
  Sex: Female

DRUGS (2)
  1. ZOMETA [Suspect]
     Indication: METASTASES TO BONE
     Dosage: MONTHLY
     Route: 065
     Dates: start: 20041229, end: 20050601
  2. CMFP-REGIMEN [Concomitant]
     Indication: BREAST CANCER METASTATIC
     Route: 065
     Dates: start: 20041123

REACTIONS (2)
  - OSTEONECROSIS [None]
  - TOOTH INFECTION [None]
